FAERS Safety Report 4655935-1 (Version None)
Quarter: 2005Q2

REPORT INFORMATION
  Report Type: 
  Country: None (occurrence: None)
  Receive Date: 20050509
  Receipt Date: 20050321
  Transmission Date: 20051028
  Serious: Yes (Death)
  Sender: FDA-Public Use
  Company Number: US-BRISTOL-MYERS SQUIBB COMPANY-12906293

PATIENT
  Sex: Male

DRUGS (1)
  1. GLUCOVANCE [Suspect]
     Dosage: DOSAGE FORM = 2.5/500

REACTIONS (1)
  - DEATH [None]
